FAERS Safety Report 6358675-6 (Version None)
Quarter: 2009Q3

REPORT INFORMATION
  Report Type: 
  Country: None (occurrence: None)
  Receive Date: 20090916
  Receipt Date: 20090807
  Transmission Date: 20100115
  Serious: No
  Sender: FDA-Public Use
  Company Number: US-ABBOTT-09P-163-0591304-00

PATIENT
  Sex: Male

DRUGS (2)
  1. TRILIPIX [Suspect]
     Indication: METABOLIC SYNDROME
     Route: 048
     Dates: start: 20090501
  2. CRESTOR [Suspect]
     Indication: METABOLIC SYNDROME
     Route: 048

REACTIONS (1)
  - LIVER FUNCTION TEST ABNORMAL [None]
